FAERS Safety Report 8812155 (Version 1)
Quarter: 2012Q4

REPORT INFORMATION
  Report Type: 
  Country: IE (occurrence: IE)
  Receive Date: 20120927
  Receipt Date: 20120927
  Transmission Date: 20130627
  Serious: Yes (Other)
  Sender: FDA-Public Use
  Company Number: IE-ASTRAZENECA-2012SE73108

PATIENT
  Age: 73 Year
  Sex: Male

DRUGS (6)
  1. SEROQUEL XR [Suspect]
     Route: 048
  2. ASPIRIN [Concomitant]
  3. QUININE [Concomitant]
  4. SINEMET [Concomitant]
  5. GLUCOPHAGE [Concomitant]
  6. DULANE [Concomitant]

REACTIONS (3)
  - Pulmonary embolism [Unknown]
  - Dyspnoea [Unknown]
  - Confusional state [Unknown]
